FAERS Safety Report 12835442 (Version 2)
Quarter: 2016Q4

REPORT INFORMATION
  Report Type: Spontaneous
  Country: US (occurrence: US)
  Receive Date: 20161011
  Receipt Date: 20161012
  Transmission Date: 20170207
  Serious: No
  Sender: FDA-Public Use
  Company Number: US-TEVA-677221USA

PATIENT
  Sex: Female

DRUGS (3)
  1. PHENERGAN [Concomitant]
     Active Substance: PROMETHAZINE HYDROCHLORIDE
  2. ZECUITY [Suspect]
     Active Substance: SUMATRIPTAN SUCCINATE
     Indication: MIGRAINE
     Route: 062
  3. PERCOCET [Concomitant]
     Active Substance: ACETAMINOPHEN\OXYCODONE HYDROCHLORIDE

REACTIONS (3)
  - Application site vesicles [Recovered/Resolved]
  - Application site erythema [Recovered/Resolved]
  - Application site inflammation [Recovered/Resolved]

NARRATIVE: CASE EVENT DATE: 2016
